FAERS Safety Report 17260135 (Version 1)
Quarter: 2020Q1

REPORT INFORMATION
  Report Type: Spontaneous
  Country: US (occurrence: US)
  Receive Date: 20200111
  Receipt Date: 20200111
  Transmission Date: 20200409
  Serious: Yes (Other)
  Sender: FDA-Public Use
  Company Number: US-ZYDUS-046296

PATIENT
  Age: 16 Year
  Sex: Male

DRUGS (1)
  1. VALPROATE SEMISODIQUE [Suspect]
     Active Substance: DIVALPROEX SODIUM
     Indication: EPILEPSY
     Dosage: EXTENDED-RELEASE TABLET??TAKEN AT BEDTIME
     Route: 048

REACTIONS (1)
  - Drug interaction [Unknown]
